FAERS Safety Report 20997415 (Version 1)
Quarter: 2022Q2

REPORT INFORMATION
  Report Type: Spontaneous
  Country: SE (occurrence: SE)
  Receive Date: 20220623
  Receipt Date: 20220623
  Transmission Date: 20220721
  Serious: Yes (Other)
  Sender: FDA-Public Use
  Company Number: None

PATIENT
  Age: 48 Year
  Sex: Female
  Weight: 64 kg

DRUGS (1)
  1. IMRALDI [Suspect]
     Active Substance: ADALIMUMAB
     Indication: Rheumatoid arthritis
     Dosage: 40 MG 1 SYRINGE EVERY 14 DAYS
     Route: 065
     Dates: start: 20201110, end: 20210330

REACTIONS (5)
  - Hypoaesthesia [Recovered/Resolved]
  - Restless legs syndrome [Recovering/Resolving]
  - Depressive symptom [Recovered/Resolved]
  - Pain [Recovered/Resolved]
  - Suicidal ideation [Recovered/Resolved]

NARRATIVE: CASE EVENT DATE: 20210101
